FAERS Safety Report 22189261 (Version 1)
Quarter: 2023Q2

REPORT INFORMATION
  Report Type: Spontaneous
  Country: RS (occurrence: RS)
  Receive Date: 20230410
  Receipt Date: 20230410
  Transmission Date: 20230721
  Serious: Yes (Other)
  Sender: FDA-Public Use
  Company Number: RS-MSNLABS-2023MSNLIT00510

PATIENT

DRUGS (1)
  1. ALBENDAZOLE [Suspect]
     Active Substance: ALBENDAZOLE
     Indication: Enterobiasis
     Route: 065

REACTIONS (2)
  - Immune-mediated hepatic disorder [Recovered/Resolved]
  - Autoimmune hepatitis [Recovered/Resolved]
